FAERS Safety Report 9258958 (Version 2)
Quarter: 2014Q1

REPORT INFORMATION
  Report Type: Spontaneous
  Country: FR (occurrence: FR)
  Receive Date: 20130426
  Receipt Date: 20140219
  Transmission Date: 20141002
  Serious: Yes (Other)
  Sender: FDA-Public Use
  Company Number: FR-AMGEN-FRASP2013028807

PATIENT
  Age: 47 Year
  Sex: Female
  Weight: 59 kg

DRUGS (3)
  1. FILGRASTIM [Suspect]
     Indication: PRODUCT USED FOR UNKNOWN INDICATION
     Dosage: UNK
     Route: 065
  2. TRASTUZUMAB EMTANSINE [Suspect]
     Indication: BREAST CANCER
     Dosage: 366 MG, EVERY 3 WEEK
     Route: 042
     Dates: start: 20120917, end: 20121220
  3. DOCETAXEL [Suspect]
     Indication: BREAST CANCER
     Dosage: 160 MG, EVERY 3 WEEK
     Route: 042
     Dates: start: 20120917, end: 20121220

REACTIONS (1)
  - Dermatitis exfoliative [Recovered/Resolved]
